FAERS Safety Report 11972849 (Version 1)
Quarter: 2016Q1

REPORT INFORMATION
  Report Type: Spontaneous
  Country: CA (occurrence: CA)
  Receive Date: 20160128
  Receipt Date: 20160128
  Transmission Date: 20160526
  Serious: Yes (Hospitalization, Other)
  Sender: FDA-Public Use
  Company Number: CA-TEVA-628573ACC

PATIENT
  Age: 58 Year
  Sex: Male

DRUGS (18)
  1. GLICLAZIDE [Concomitant]
     Active Substance: GLICLAZIDE
  2. OLANZAPINE. [Concomitant]
     Active Substance: OLANZAPINE
  3. DIVALPROEX SODIUM. [Suspect]
     Active Substance: DIVALPROEX SODIUM
     Indication: EPILEPSY
     Route: 048
  4. ATORVASTATIN CALCIUM. [Concomitant]
     Active Substance: ATORVASTATIN CALCIUM
  5. METFORMIN [Concomitant]
     Active Substance: METFORMIN HYDROCHLORIDE
  6. TAMSULOSIN [Concomitant]
     Active Substance: TAMSULOSIN
  7. FERROUS GLUCONATE [Concomitant]
     Active Substance: FERROUS GLUCONATE
  8. NOVOLIN GE NPH [Concomitant]
     Active Substance: INSULIN BEEF
     Route: 058
  9. SYNTHROID [Concomitant]
     Active Substance: LEVOTHYROXINE SODIUM
  10. ASA [Concomitant]
     Active Substance: ASPIRIN
  11. LANSOPRAZOLE. [Concomitant]
     Active Substance: LANSOPRAZOLE
  12. RAMIPRIL. [Concomitant]
     Active Substance: RAMIPRIL
  13. DIVALPROEX SODIUM. [Suspect]
     Active Substance: DIVALPROEX SODIUM
     Indication: BIPOLAR DISORDER
  14. ELAVIL [Concomitant]
     Active Substance: AMITRIPTYLINE HYDROCHLORIDE
  15. CLONAZEPAM. [Concomitant]
     Active Substance: CLONAZEPAM
  16. DIVALPROEX SODIUM. [Concomitant]
     Active Substance: DIVALPROEX SODIUM
  17. AGGRENOX [Concomitant]
     Active Substance: ASPIRIN\DIPYRIDAMOLE
  18. QUETIAPINE XR [Concomitant]
     Active Substance: QUETIAPINE

REACTIONS (9)
  - Throat irritation [Unknown]
  - Oxygen saturation decreased [Unknown]
  - Erythema [Unknown]
  - Heart rate increased [Unknown]
  - Pyrexia [Unknown]
  - Neuroleptic malignant syndrome [Unknown]
  - Tachycardia [Unknown]
  - Angioedema [Unknown]
  - Respiratory tract oedema [Unknown]
